FAERS Safety Report 4645231-0 (Version None)
Quarter: 2005Q2

REPORT INFORMATION
  Report Type: 
  Country: None (occurrence: None)
  Receive Date: 20050426
  Receipt Date: 20050415
  Transmission Date: 20051028
  Serious: Yes (Other)
  Sender: FDA-Public Use
  Company Number: NL-GLAXOSMITHKLINE-B0378589A

PATIENT
  Age: 66 Year
  Sex: Male

DRUGS (3)
  1. DUTASTERIDE [Suspect]
     Indication: BENIGN PROSTATIC HYPERPLASIA
     Dates: start: 20050325, end: 20050413
  2. OMNIC [Concomitant]
     Dosage: 400MCG PER DAY
     Route: 065
     Dates: start: 20020101, end: 20050415
  3. XATRAL [Concomitant]
     Dosage: 10MG PER DAY
     Route: 065
     Dates: start: 20050413

REACTIONS (3)
  - ANXIETY [None]
  - DYSPNOEA [None]
  - RESPIRATORY DISTRESS [None]
